FAERS Safety Report 17792171 (Version 1)
Quarter: 2020Q2

REPORT INFORMATION
  Report Type: Report from Study
  Country: CO (occurrence: CO)
  Receive Date: 20200515
  Receipt Date: 20200515
  Transmission Date: 20200714
  Serious: Yes (Hospitalization)
  Sender: FDA-Public Use
  Company Number: CO-INCYTE CORPORATION-2018IN013540

PATIENT

DRUGS (1)
  1. JAKAVI [Suspect]
     Active Substance: RUXOLITINIB
     Indication: MYELOFIBROSIS
     Dosage: 5 MG, Q12H
     Route: 065
     Dates: start: 201804

REACTIONS (9)
  - Effusion [Unknown]
  - Pyrexia [Unknown]
  - Haemoglobin decreased [Unknown]
  - Inflammation [Unknown]
  - Arthralgia [Unknown]
  - Thrombophlebitis [Unknown]
  - General physical health deterioration [Unknown]
  - Joint swelling [Unknown]
  - Joint injury [Unknown]

NARRATIVE: CASE EVENT DATE: 20181220
